FAERS Safety Report 11144920 (Version 2)
Quarter: 2015Q2

REPORT INFORMATION
  Report Type: Spontaneous
  Country: US (occurrence: None)
  Receive Date: 20150526
  Receipt Date: 20150601
  Transmission Date: 20150821
  Serious: Yes (Other)
  Sender: FDA-Public Use
  Company Number: ADR-2015-01006

PATIENT
  Age: 66 Year
  Sex: Male

DRUGS (2)
  1. MORPHINE INTRATHECAL 40MG/ML [Suspect]
     Active Substance: MORPHINE
  2. BACLOFEN INTRATHECAL 25MCG/ML [Suspect]
     Active Substance: BACLOFEN
     Indication: SPINAL PAIN

REACTIONS (6)
  - Device power source issue [None]
  - Device physical property issue [None]
  - Withdrawal syndrome [None]
  - No therapeutic response [None]
  - Device breakage [None]
  - Incorrect drug administration rate [None]
